FAERS Safety Report 9222915 (Version 2)
Quarter: 2013Q2

REPORT INFORMATION
  Report Type: Report from Study
  Country: US (occurrence: US)
  Receive Date: 20130410
  Receipt Date: 20130517
  Transmission Date: 20140414
  Serious: Yes (Other)
  Sender: FDA-Public Use
  Company Number: US-ROCHE-1211135

PATIENT
  Age: 55 Year
  Sex: Female
  Weight: 105.7 kg

DRUGS (1)
  1. ALTEPLASE [Suspect]
     Indication: ISCHAEMIC STROKE
     Dosage: 200 MINUTES AFTER SYMPTOM ONSET.
     Route: 042

REACTIONS (6)
  - Hypersomnia [Unknown]
  - Apnoea [Unknown]
  - Oxygen saturation decreased [Unknown]
  - Neurological decompensation [Unknown]
  - Drug ineffective [Recovered/Resolved]
  - Hemiplegia [Unknown]
